FAERS Safety Report 6828447-4 (Version None)
Quarter: 2010Q3

REPORT INFORMATION
  Report Type: 
  Country: None (occurrence: None)
  Receive Date: 20100709
  Receipt Date: 20070209
  Transmission Date: 20110219
  Serious: No
  Sender: FDA-Public Use
  Company Number: US-PFIZER INC-2007011838

PATIENT
  Sex: Male
  Weight: 131.54 kg

DRUGS (5)
  1. CHANTIX [Suspect]
     Indication: SMOKING CESSATION THERAPY
     Route: 048
     Dates: start: 20070202, end: 20070207
  2. NAPROSYN [Concomitant]
  3. TRAZODONE [Concomitant]
     Indication: INSOMNIA
  4. TRICOR [Concomitant]
  5. PREVACID [Concomitant]

REACTIONS (1)
  - ANXIETY [None]
